FAERS Safety Report 10391947 (Version 1)
Quarter: 2014Q3

REPORT INFORMATION
  Report Type: Report from Study
  Country: AR (occurrence: AR)
  Receive Date: 20140819
  Receipt Date: 20140819
  Transmission Date: 20150326
  Serious: Yes (Other)
  Sender: FDA-Public Use
  Company Number: PHHY2014AR100722

PATIENT
  Age: 74 Year
  Sex: Female

DRUGS (1)
  1. ACLASTA [Suspect]
     Active Substance: ZOLEDRONIC ACID
     Indication: BONE DISORDER
     Dosage: 1 DF, ANNUALLY
     Route: 042

REACTIONS (2)
  - Hypertension [Unknown]
  - Fracture [Recovered/Resolved]

NARRATIVE: CASE EVENT DATE: 201403
